FAERS Safety Report 6944870-1 (Version None)
Quarter: 2010Q3

REPORT INFORMATION
  Report Type: 
  Country: None (occurrence: None)
  Receive Date: 20100827
  Receipt Date: 20100817
  Transmission Date: 20110219
  Serious: Yes (Hospitalization)
  Sender: FDA-Public Use
  Company Number: BE-JNJFOC-20100805890

PATIENT
  Sex: Female

DRUGS (12)
  1. GOLIMUMAB [Suspect]
     Indication: RHEUMATOID ARTHRITIS
     Route: 058
  2. METHOTREXATE [Suspect]
     Indication: RHEUMATOID ARTHRITIS
     Route: 058
  3. TRADONAL [Concomitant]
     Indication: RHEUMATOID ARTHRITIS
  4. PANTOMED [Concomitant]
     Indication: GASTRITIS PROPHYLAXIS
  5. EMCONCOR [Concomitant]
     Indication: HYPERTENSION
  6. FOLIC ACID [Concomitant]
     Indication: RHEUMATOID ARTHRITIS
  7. CALCIUM AND D3 [Concomitant]
     Indication: RHEUMATOID ARTHRITIS
  8. ACETAMINOPHEN [Concomitant]
     Indication: PYREXIA
  9. FURADANTIN [Concomitant]
     Indication: URINARY TRACT INFECTION
  10. ZOPICLONE [Concomitant]
     Indication: INSOMNIA
  11. LEFLUNOMIDE [Concomitant]
     Indication: RHEUMATOID ARTHRITIS
  12. CARDIO ASPIRINE [Concomitant]
     Indication: CEREBROVASCULAR ACCIDENT

REACTIONS (1)
  - GENERAL PHYSICAL HEALTH DETERIORATION [None]
